FAERS Safety Report 17659847 (Version 1)
Quarter: 2020Q2

REPORT INFORMATION
  Report Type: Spontaneous
  Country: US (occurrence: US)
  Receive Date: 20200413
  Receipt Date: 20200413
  Transmission Date: 20200713
  Serious: No
  Sender: FDA-Public Use
  Company Number: US-BION-008111

PATIENT
  Sex: Male

DRUGS (3)
  1. ASPIRIN REGIMEN BAYER [Suspect]
     Active Substance: ASPIRIN
     Indication: HEADACHE
     Dosage: STRENGTH: 325 MG?TOOK AS DIRECTED
     Route: 048
  2. XANAX [Concomitant]
     Active Substance: ALPRAZOLAM
  3. ALEVE [Suspect]
     Active Substance: NAPROXEN SODIUM
     Indication: HEADACHE
     Dosage: TOOK AS DIRECTED
     Route: 048

REACTIONS (3)
  - Anxiety [Unknown]
  - Headache [Unknown]
  - Drug ineffective [Not Recovered/Not Resolved]
